FAERS Safety Report 8667241 (Version 2)
Quarter: 2012Q4

REPORT INFORMATION
  Report Type: 
  Country: US (occurrence: US)
  Receive Date: 20120717
  Receipt Date: 20120903
  Transmission Date: 20130627
  Serious: No
  Sender: FDA-Public Use
  Company Number: US-PFIZER INC-2012169686

PATIENT
  Age: 87 Year
  Sex: Male
  Weight: 65.76 kg

DRUGS (7)
  1. TIKOSYN [Suspect]
     Indication: ATRIAL FIBRILLATION
     Dosage: 250 ug, 2x/day
     Route: 048
     Dates: start: 20080728
  2. PRAVASTATIN [Concomitant]
     Indication: BLOOD CHOLESTEROL ABNORMAL
     Dosage: 40 mg, UNK
  3. COUMADINE [Concomitant]
     Dosage: UNK, 2x/day
  4. LEVOTHYROXINE [Concomitant]
     Dosage: 75 ug, UNK
  5. METOPROLOL [Concomitant]
     Dosage: 25 mg, 2x/day
  6. FLOMAX [Concomitant]
     Dosage: 10 mg, UNK
  7. ZOLOFT [Concomitant]
     Dosage: 25 mg, UNK

REACTIONS (1)
  - Tinnitus [Not Recovered/Not Resolved]
